FAERS Safety Report 12811310 (Version 1)
Quarter: 2016Q4

REPORT INFORMATION
  Report Type: Spontaneous
  Country: US (occurrence: US)
  Receive Date: 20161005
  Receipt Date: 20161005
  Transmission Date: 20170207
  Serious: No
  Sender: FDA-Public Use
  Company Number: US-BEH-2016060435

PATIENT
  Sex: Male

DRUGS (6)
  1. CARIMUNE [Suspect]
     Active Substance: HUMAN IMMUNOGLOBULIN G
     Dates: start: 20160312
  2. CARIMUNE [Suspect]
     Active Substance: HUMAN IMMUNOGLOBULIN G
     Dosage: 12 GM VIAL
  3. CARIMUNE [Suspect]
     Active Substance: HUMAN IMMUNOGLOBULIN G
  4. CARIMUNE [Suspect]
     Active Substance: HUMAN IMMUNOGLOBULIN G
     Dates: start: 20160313
  5. CARIMUNE [Suspect]
     Active Substance: HUMAN IMMUNOGLOBULIN G
     Dates: start: 20160314
  6. CARIMUNE [Suspect]
     Active Substance: HUMAN IMMUNOGLOBULIN G
     Indication: PRODUCT USED FOR UNKNOWN INDICATION

REACTIONS (1)
  - Hepatitis B core antibody positive [Unknown]
